FAERS Safety Report 4356293-2 (Version None)
Quarter: 2004Q2

REPORT INFORMATION
  Report Type: 
  Country: None (occurrence: None)
  Receive Date: 20040510
  Receipt Date: 20040510
  Transmission Date: 20050107
  Serious: Yes (Life-Threatening, Hospitalization, Disabling)
  Sender: FDA-Public Use
  Company Number: None

PATIENT
  Age: 36 Year
  Sex: Female
  Weight: 81.6475 kg

DRUGS (2)
  1. PHENOBARBITAL TAB [Suspect]
     Indication: CONVULSION
     Dosage: 200 MG EVERY AM
  2. SYNTHROID [Concomitant]

REACTIONS (5)
  - ACUTE STRESS DISORDER [None]
  - AMNESIA [None]
  - CONVULSION [None]
  - DYSPHEMIA [None]
  - MEDICATION ERROR [None]
